FAERS Safety Report 7712688-8 (Version None)
Quarter: 2011Q3

REPORT INFORMATION
  Report Type: 
  Country: None (occurrence: None)
  Receive Date: 20110826
  Receipt Date: 20110815
  Transmission Date: 20111222
  Serious: Yes (Other)
  Sender: FDA-Public Use
  Company Number: BR-BRISTOL-MYERS SQUIBB COMPANY-16002057

PATIENT
  Age: 28 Year
  Sex: Female

DRUGS (3)
  1. CYCLOPHOSPHAMIDE [Suspect]
     Indication: LUPUS NEPHRITIS
     Dosage: DURATION OF THERAPY:LESS THAN 4 WKS
  2. HYDROXYCHLOROQUINE [Concomitant]
  3. PREDNISONE [Concomitant]

REACTIONS (2)
  - ABORTION SPONTANEOUS [None]
  - PREGNANCY [None]
